FAERS Safety Report 7828788-8 (Version None)
Quarter: 2011Q4

REPORT INFORMATION
  Report Type: 
  Country: None (occurrence: None)
  Receive Date: 20111020
  Receipt Date: 20111018
  Transmission Date: 20120403
  Serious: No
  Sender: FDA-Public Use
  Company Number: US-B.I. PHARMACEUTICALS,INC./RIDGEFIELD-2011-BP-22059BP

PATIENT
  Sex: Male

DRUGS (14)
  1. PRADAXA [Suspect]
     Indication: ATRIAL FIBRILLATION
     Dosage: 300 MG
     Route: 048
     Dates: start: 20110829
  2. COMBIGAN [Concomitant]
     Indication: GLAUCOMA
     Dates: start: 20100101
  3. MAGNESIUM [Concomitant]
  4. VIT C [Concomitant]
  5. CALCIUM CARBONATE [Concomitant]
  6. PREDNISONE [Concomitant]
     Indication: CATARACT OPERATION
     Dates: start: 20110728
  7. MURO 128 [Concomitant]
     Indication: CATARACT OPERATION
     Dates: start: 20110728
  8. FISH OIL [Concomitant]
  9. VIT E [Concomitant]
  10. VIT D [Concomitant]
  11. MULTI-VITAMIN [Concomitant]
  12. GLUCOSAMINE [Concomitant]
  13. ZINC [Concomitant]
  14. VITAMIN B COMPLEX CAP [Concomitant]

REACTIONS (4)
  - URINE ODOUR ABNORMAL [None]
  - HAEMORRHOIDAL HAEMORRHAGE [None]
  - GOUT [None]
  - DIARRHOEA [None]
